FAERS Safety Report 8902467 (Version 1)
Quarter: 2012Q4

REPORT INFORMATION
  Report Type: 
  Country: ES (occurrence: ES)
  Receive Date: 20121112
  Receipt Date: 20121112
  Transmission Date: 20130627
  Serious: Yes (Death, Other)
  Sender: FDA-Public Use
  Company Number: ES-ELI_LILLY_AND_COMPANY-ES201211000455

PATIENT
  Age: 43 Year
  Sex: Male

DRUGS (1)
  1. FORSTEO [Suspect]
     Dosage: UNK
     Dates: start: 201104

REACTIONS (4)
  - Cardio-respiratory arrest [Fatal]
  - Overdose [Fatal]
  - Depression [Not Recovered/Not Resolved]
  - Dependence [Not Recovered/Not Resolved]
